FAERS Safety Report 4546838-1 (Version None)
Quarter: 2005Q1

REPORT INFORMATION
  Report Type: 
  Country: None (occurrence: None)
  Receive Date: 20050105
  Receipt Date: 20041216
  Transmission Date: 20050727
  Serious: Yes (Hospitalization)
  Sender: FDA-Public Use
  Company Number: GBS041115858

PATIENT
  Age: 64 Year
  Sex: Female

DRUGS (7)
  1. GEMCITABINE HYDROCHLORIDE-IV (GEMCITABINE) [Suspect]
     Indication: NON-SMALL CELL LUNG CANCER
     Dosage: 2014 MG/2 OTHER
     Route: 050
     Dates: start: 20041011, end: 20041018
  2. CARBOPLATIN [Concomitant]
  3. GRANISETRON [Concomitant]
  4. DEXAMETHASONE [Concomitant]
  5. DOMPERIDONE [Concomitant]
  6. CEPHALEXIN [Concomitant]
  7. FLUCONAZOLE [Concomitant]

REACTIONS (4)
  - INFLAMMATION [None]
  - MALAISE [None]
  - PYREXIA [None]
  - RASH MACULO-PAPULAR [None]
